FAERS Safety Report 24010375 (Version 2)
Quarter: 2024Q3

REPORT INFORMATION
  Report Type: Spontaneous
  Country: DE (occurrence: DE)
  Receive Date: 20240625
  Receipt Date: 20240717
  Transmission Date: 20241016
  Serious: No
  Sender: SANOFI AVENTIS
  Company Number: DE-SANOFI-02101811

PATIENT
  Age: 56 Year
  Sex: Female

DRUGS (1)
  1. DUPIXENT [Suspect]
     Active Substance: DUPILUMAB
     Dosage: UNK

REACTIONS (1)
  - No adverse event [Unknown]
